FAERS Safety Report 7795756-4 (Version None)
Quarter: 2011Q3

REPORT INFORMATION
  Report Type: 
  Country: None (occurrence: None)
  Receive Date: 20110929
  Receipt Date: 20110916
  Transmission Date: 20111222
  Serious: Yes (Hospitalization, Other)
  Sender: FDA-Public Use
  Company Number: 2011SP040006

PATIENT
  Age: 54 Year
  Sex: Male

DRUGS (9)
  1. NEUPOGEN [Concomitant]
  2. PHENERGAN HCL [Concomitant]
  3. REBETOL [Suspect]
     Indication: PRODUCT USED FOR UNKNOWN INDICATION
     Dosage: 800 MG
     Dates: start: 20101214, end: 20110714
  4. RESTORIL [Concomitant]
  5. IBUPROFEN [Concomitant]
  6. ZOFRAN [Concomitant]
  7. TRAZODONE HYDROCHLORIDE [Concomitant]
  8. LEVAQUIN [Concomitant]
  9. PEG-INTRON [Suspect]
     Indication: PRODUCT USED FOR UNKNOWN INDICATION
     Dosage: 0.5 MCG;QW;SC
     Route: 058
     Dates: start: 20101214, end: 20110714

REACTIONS (17)
  - DIZZINESS [None]
  - HYPERHIDROSIS [None]
  - BLOOD ALBUMIN DECREASED [None]
  - HEPATIC FAILURE [None]
  - RED BLOOD CELL COUNT DECREASED [None]
  - ASTHENIA [None]
  - NEUTROPENIA [None]
  - SPLENOMEGALY [None]
  - PORTAL HYPERTENSION [None]
  - AMMONIA INCREASED [None]
  - DEHYDRATION [None]
  - DIVERTICULUM [None]
  - HEPATIC CIRRHOSIS [None]
  - DIVERTICULITIS [None]
  - COLLAGEN DISORDER [None]
  - HAEMOGLOBIN DECREASED [None]
  - BLOOD PRESSURE DECREASED [None]
